FAERS Safety Report 18160814 (Version 1)
Quarter: 2020Q3

REPORT INFORMATION
  Report Type: Spontaneous
  Country: US (occurrence: US)
  Receive Date: 20200818
  Receipt Date: 20200818
  Transmission Date: 20201103
  Serious: No
  Sender: FDA-Public Use
  Company Number: US-COLGATE PALMOLIVE COMPANY-20190802192

PATIENT
  Sex: Male

DRUGS (1)
  1. COLGATE TOTAL ADVANCED WHITENING [Suspect]
     Active Substance: SODIUM FLUORIDE\TRICLOSAN
     Indication: DENTAL DISORDER PROPHYLAXIS
     Dosage: UNK, BID

REACTIONS (4)
  - Lip pain [Recovered/Resolved]
  - Oral pain [Recovered/Resolved]
  - Oral discomfort [Recovered/Resolved]
  - Rhinorrhoea [Recovered/Resolved]
